FAERS Safety Report 6812574-1 (Version None)
Quarter: 2010Q3

REPORT INFORMATION
  Report Type: 
  Country: None (occurrence: None)
  Receive Date: 20100701
  Receipt Date: 20100623
  Transmission Date: 20110219
  Serious: Yes (Other)
  Sender: FDA-Public Use
  Company Number: US-PFIZER INC-2010069899

PATIENT
  Sex: Female
  Weight: 45 kg

DRUGS (5)
  1. XALATAN [Suspect]
     Dosage: 1 DROP AT NIGHT
     Route: 047
     Dates: start: 20100327, end: 20100401
  2. COMBIGAN [Suspect]
     Indication: GLAUCOMA
     Dosage: 1 DROP, 2X/DAY
     Route: 047
     Dates: start: 20090701, end: 20100101
  3. GALENIC /HYDROCHLOROTHIAZIDE/IRBESARTAN/ [Concomitant]
     Dosage: 300/12.5MG DAILY
  4. AMLODIPINE [Concomitant]
     Dosage: 5MG, DAILY
  5. LEVOTHYROXINE SODIUM [Concomitant]
     Dosage: 150UG, DAILY

REACTIONS (2)
  - EYE PRURITUS [None]
  - ULCERATIVE KERATITIS [None]
